FAERS Safety Report 8174749-1 (Version None)
Quarter: 2012Q1

REPORT INFORMATION
  Report Type: 
  Country: None (occurrence: None)
  Receive Date: 20120229
  Receipt Date: 20120203
  Transmission Date: 20120608
  Serious: Yes (Hospitalization)
  Sender: FDA-Public Use
  Company Number: DE-GLAXOSMITHKLINE-D0074372B

PATIENT

DRUGS (1)
  1. LAMICTAL [Suspect]
     Dosage: 400MG PER DAY
     Route: 064

REACTIONS (4)
  - MUSCULAR WEAKNESS [None]
  - ANTICONVULSANT DRUG LEVEL BELOW THERAPEUTIC [None]
  - DISTURBANCE IN ATTENTION [None]
  - HYPOPNOEA [None]
